FAERS Safety Report 25519833 (Version 1)
Quarter: 2025Q3

REPORT INFORMATION
  Report Type: Spontaneous
  Country: US (occurrence: US)
  Receive Date: 20250704
  Receipt Date: 20250704
  Transmission Date: 20251021
  Serious: Yes (Hospitalization, Other)
  Sender: ADVANZ PHARMA
  Company Number: US-ADVANZ PHARMA-202506005186

PATIENT

DRUGS (13)
  1. TRANYLCYPROMINE SULFATE [Suspect]
     Active Substance: TRANYLCYPROMINE SULFATE
     Indication: Depression
  2. TRANYLCYPROMINE SULFATE [Suspect]
     Active Substance: TRANYLCYPROMINE SULFATE
     Indication: Catatonia
  3. METHYLPHENIDATE [Suspect]
     Active Substance: METHYLPHENIDATE
     Indication: Product used for unknown indication
     Route: 065
  4. METHYLPHENIDATE [Suspect]
     Active Substance: METHYLPHENIDATE
     Route: 065
  5. WELLBUTRIN [Concomitant]
     Active Substance: BUPROPION HYDROCHLORIDE
  6. ACYCLOVIR [Concomitant]
     Active Substance: ACYCLOVIR
  7. CALCITRIOL [Concomitant]
     Active Substance: CALCITRIOL
  8. LITHIUM [Concomitant]
     Active Substance: LITHIUM
     Route: 048
     Dates: start: 2002, end: 2024
  9. DITROPAN [Concomitant]
     Active Substance: OXYBUTYNIN CHLORIDE
  10. VENLAFAXINE [Concomitant]
     Active Substance: VENLAFAXINE HYDROCHLORIDE
  11. Brukinsa  (zanubrutinib) [Concomitant]
  12. Buspar (buspirone hydrochloride) [Concomitant]
  13. FLUOXETINE [Concomitant]
     Active Substance: FLUOXETINE HYDROCHLORIDE
     Indication: Depression
     Dates: start: 2024, end: 2024

REACTIONS (11)
  - Hypotension [Recovered/Resolved]
  - Fall [Recovered/Resolved]
  - Psychotic disorder [Recovered/Resolved]
  - Sepsis [Recovered/Resolved]
  - Pneumonia [Recovered/Resolved]
  - Bundle branch block left [Unknown]
  - Sinus bradycardia [Unknown]
  - Bundle branch block right [Unknown]
  - Left atrial dilatation [Unknown]
  - Aortic dilatation [Unknown]
  - Off label use [Unknown]
